FAERS Safety Report 4481467-X (Version None)
Quarter: 2004Q3

REPORT INFORMATION
  Report Type: 
  Country: None (occurrence: None)
  Receive Date: 20040923
  Receipt Date: 20040610
  Transmission Date: 20050211
  Serious: No
  Sender: FDA-Public Use
  Company Number: USA040669931

PATIENT
  Age: 84 Year
  Sex: Female
  Weight: 49 kg

DRUGS (1)
  1. FORTEO [Suspect]
     Indication: OSTEOPOROSIS
     Dates: start: 20031201

REACTIONS (2)
  - PAIN [None]
  - PERIPHERAL COLDNESS [None]
